FAERS Safety Report 11760842 (Version 1)
Quarter: 2015Q4

REPORT INFORMATION
  Report Type: Spontaneous
  Country: BR (occurrence: BR)
  Receive Date: 20151120
  Receipt Date: 20151120
  Transmission Date: 20160304
  Serious: Yes (Other)
  Sender: FDA-Public Use
  Company Number: BR-BAUSCH-BL-2015-027271

PATIENT
  Age: 36 Year
  Sex: Female

DRUGS (1)
  1. ELIDEL [Suspect]
     Active Substance: PIMECROLIMUS
     Indication: SEBORRHOEIC DERMATITIS
     Dosage: FROM 10YEARS AGO
     Route: 061
     Dates: end: 20151021

REACTIONS (3)
  - Off label use [Unknown]
  - Deformity [Recovering/Resolving]
  - Wound [Recovering/Resolving]

NARRATIVE: CASE EVENT DATE: 20151021
